FAERS Safety Report 6456812-6 (Version None)
Quarter: 2009Q4

REPORT INFORMATION
  Report Type: 
  Country: None (occurrence: None)
  Receive Date: 20091124
  Receipt Date: 20091124
  Transmission Date: 20100525
  Serious: Yes (Life-Threatening, Other)
  Sender: FDA-Public Use
  Company Number: None

PATIENT
  Age: 21 Year
  Sex: Female
  Weight: 70.3075 kg

DRUGS (1)
  1. VARENICLINE ? PFIZER [Suspect]
     Indication: SMOKING CESSATION THERAPY
     Dosage: .5 MILLIGRAMS ONCE/TWICE DAILY PO
     Route: 048
     Dates: start: 20090912, end: 20090920

REACTIONS (10)
  - ANHEDONIA [None]
  - BIPOLAR DISORDER [None]
  - DEPRESSION [None]
  - DISTURBANCE IN ATTENTION [None]
  - HYPERPHAGIA [None]
  - INSOMNIA [None]
  - INTENTIONAL SELF-INJURY [None]
  - POOR PERSONAL HYGIENE [None]
  - SOCIAL AVOIDANT BEHAVIOUR [None]
  - SUICIDAL IDEATION [None]
